FAERS Safety Report 17461657 (Version 2)
Quarter: 2020Q3

REPORT INFORMATION
  Report Type: Spontaneous
  Country: US (occurrence: US)
  Receive Date: 20200226
  Receipt Date: 20200824
  Transmission Date: 20201102
  Serious: Yes (Other)
  Sender: FDA-Public Use
  Company Number: US-ALKERMES INC.-ALK-2020-000814

PATIENT
  Age: 59 Year
  Sex: Female

DRUGS (3)
  1. VIVITROL [Suspect]
     Active Substance: NALTREXONE
     Dosage: 380 MG, QMO
     Route: 030
     Dates: start: 20200123, end: 20200123
  2. VIVITROL [Suspect]
     Active Substance: NALTREXONE
     Indication: ALCOHOLISM
     Dosage: 380 MG, QMO
     Route: 030
     Dates: start: 20200605, end: 20200605
  3. VIVITROL [Suspect]
     Active Substance: NALTREXONE
     Dosage: 380 MG, QMO
     Route: 030
     Dates: start: 20191031, end: 20191031

REACTIONS (5)
  - Inadequate analgesia [Unknown]
  - Ankle fracture [Unknown]
  - Pain [Unknown]
  - Fall [Recovered/Resolved]
  - Spinal operation [Unknown]

NARRATIVE: CASE EVENT DATE: 202002
